FAERS Safety Report 7137939-2 (Version None)
Quarter: 2010Q4

REPORT INFORMATION
  Report Type: 
  Country: None (occurrence: None)
  Receive Date: 20101103
  Receipt Date: 20100910
  Transmission Date: 20110411
  Serious: Yes (Other)
  Sender: FDA-Public Use
  Company Number: 2010S1001288

PATIENT
  Age: 57 Year
  Sex: Male
  Weight: 76.5 kg

DRUGS (10)
  1. CUBICIN [Suspect]
     Indication: ENDOCARDITIS
     Dosage: 6.5 MG/KG; Q24H; IV
     Route: 042
     Dates: start: 20100415, end: 20100430
  2. OMEPRAZOLE [Concomitant]
  3. PARACETAMOL [Concomitant]
  4. AMIODARONE [Concomitant]
  5. GENTAMICIN SULFATE [Concomitant]
  6. MEROPENEM [Concomitant]
  7. TINZAPARIN [Concomitant]
  8. METOCLOPRAMIDE [Concomitant]
  9. LACTULOSE [Concomitant]
  10. VANCOMYCIN [Concomitant]

REACTIONS (1)
  - BLOOD CREATINE PHOSPHOKINASE INCREASED [None]
